FAERS Safety Report 12215790 (Version 6)
Quarter: 2016Q3

REPORT INFORMATION
  Report Type: Report from Study
  Country: IL (occurrence: IL)
  Receive Date: 20160328
  Receipt Date: 20160803
  Transmission Date: 20161109
  Serious: Yes (Hospitalization, Other)
  Sender: FDA-Public Use
  Company Number: IL-ABBVIE-16P-082-1589817-00

PATIENT
  Age: 75 Year
  Sex: Female

DRUGS (1)
  1. DUODOPA [Suspect]
     Active Substance: CARBIDOPA\LEVODOPA
     Indication: PARKINSON^S DISEASE
     Route: 050
     Dates: start: 20160320

REACTIONS (17)
  - Stoma site irritation [Unknown]
  - Pain [Recovered/Resolved]
  - Blood urine present [Recovered/Resolved]
  - Flatulence [Unknown]
  - Abdominal pain [Unknown]
  - Oxygen saturation decreased [Unknown]
  - Pneumoperitoneum [Unknown]
  - Appendicitis [Unknown]
  - Stoma site erythema [Recovering/Resolving]
  - Renal disorder [Unknown]
  - Diarrhoea [Unknown]
  - Abdominal distension [Not Recovered/Not Resolved]
  - Fluid overload [Not Recovered/Not Resolved]
  - Stoma site discharge [Recovering/Resolving]
  - Stoma site extravasation [Unknown]
  - Peripheral swelling [Not Recovered/Not Resolved]
  - Abdominal pain [Unknown]

NARRATIVE: CASE EVENT DATE: 20160321
